FAERS Safety Report 8533802-0 (Version None)
Quarter: 2012Q3

REPORT INFORMATION
  Report Type: 
  Country: None (occurrence: None)
  Receive Date: 20120724
  Receipt Date: 20120717
  Transmission Date: 20120928
  Serious: Yes (Hospitalization)
  Sender: FDA-Public Use
  Company Number: US-ROCHE-1051973

PATIENT
  Age: 60 Year
  Sex: Female
  Weight: 111.18 kg

DRUGS (4)
  1. AVASTIN [Suspect]
     Indication: ENDOMETRIAL CANCER
     Dosage: OVER 30-90 MINUTES ON DAY 1 (STARTING WITH CYCLE 2 FOR THOSE PATIENTS ENTERING POST SURGERY) X 6 CYC
     Route: 042
     Dates: start: 20110113
  2. PACLITAXEL [Suspect]
     Indication: ENDOMETRIAL CANCER
     Dosage: OVER 3 HRS ON DAY 1 X 6 CYCLES, LAST DOSE PRIOR TO SAE: 27/FEB/2012
     Route: 042
     Dates: start: 20110113
  3. AVASTIN [Suspect]
     Dosage: MAINTAINENCE THERAPY (CYCLES 7+), OVER 30-90 MINS ON DAY 1
     Route: 042
  4. CARBOPLATIN [Suspect]
     Indication: ENDOMETRIAL CANCER
     Dosage: AUC = 6 IV OVER 30 MINUTES ON DAY 1 X 6 CYCLES, LAST DOSE PRIOR TO SAE: 27/FEB/2012
     Dates: start: 20110113

REACTIONS (12)
  - HYPONATRAEMIA [None]
  - ANAEMIA [None]
  - DEVICE RELATED INFECTION [None]
  - PLATELET COUNT DECREASED [None]
  - HYPOPHOSPHATAEMIA [None]
  - ABDOMINAL PAIN [None]
  - HYPERGLYCAEMIA [None]
  - PROTEINURIA [None]
  - SEROMA [None]
  - INTERNATIONAL NORMALISED RATIO INCREASED [None]
  - SKIN ULCER [None]
  - WHITE BLOOD CELL COUNT DECREASED [None]
